FAERS Safety Report 9278231 (Version 1)
Quarter: 2013Q2

REPORT INFORMATION
  Report Type: Report from Study
  Country: DE (occurrence: DE)
  Receive Date: 20130508
  Receipt Date: 20130508
  Transmission Date: 20140414
  Serious: Yes (Hospitalization, Other)
  Sender: FDA-Public Use
  Company Number: DE-JNJFOC-20130409445

PATIENT
  Age: 27 Year
  Sex: Female
  Weight: 71 kg

DRUGS (4)
  1. REMICADE [Suspect]
     Indication: CROHN^S DISEASE
     Route: 042
     Dates: start: 200704
  2. REMICADE [Suspect]
     Indication: CROHN^S DISEASE
     Route: 042
     Dates: start: 200605, end: 200702
  3. AZATHIOPRINE [Concomitant]
     Route: 065
     Dates: end: 200609
  4. METHOTREXATE [Concomitant]
     Route: 065
     Dates: start: 200706, end: 201005

REACTIONS (6)
  - Enterocutaneous fistula [Recovered/Resolved]
  - Anastomotic complication [Unknown]
  - Anaphylactic reaction [Unknown]
  - Drug effect decreased [Unknown]
  - Wound dehiscence [Recovering/Resolving]
  - Crohn^s disease [Unknown]
